FAERS Safety Report 15291459 (Version 3)
Quarter: 2019Q3

REPORT INFORMATION
  Report Type: Report from Study
  Country: US (occurrence: US)
  Receive Date: 20180817
  Receipt Date: 20190723
  Transmission Date: 20191004
  Serious: Yes (Hospitalization)
  Sender: FDA-Public Use
  Company Number: PHHO2018US009145

PATIENT
  Age: 61 Year
  Sex: Female

DRUGS (17)
  1. NEURONTIN [Concomitant]
     Active Substance: GABAPENTIN
     Indication: NEUROPATHY PERIPHERAL
     Dosage: 300 MG, TID
     Route: 048
     Dates: start: 20180330
  2. MELATONIN [Concomitant]
     Active Substance: MELATONIN
     Indication: INSOMNIA
     Dosage: 3 MG, PRN (HS)
     Route: 048
     Dates: start: 20180518
  3. TRAMETINIB [Suspect]
     Active Substance: TRAMETINIB
     Indication: COLON CANCER METASTATIC
     Dosage: 2 MG, QD (28 DAYS)
     Route: 048
     Dates: start: 20180511, end: 20180715
  4. FLOMAX [Concomitant]
     Active Substance: TAMSULOSIN HYDROCHLORIDE
     Indication: PRODUCT USED FOR UNKNOWN INDICATION
     Dosage: 0.4 MG, QD
     Route: 048
     Dates: start: 20180330
  5. DULOXETINE. [Concomitant]
     Active Substance: DULOXETINE
     Indication: PRODUCT USED FOR UNKNOWN INDICATION
     Dosage: 40 MG, QD
     Route: 048
     Dates: start: 20170321
  6. REQUIP [Concomitant]
     Active Substance: ROPINIROLE HYDROCHLORIDE
     Indication: PRODUCT USED FOR UNKNOWN INDICATION
     Dosage: 0.5 MG, TID
     Route: 048
     Dates: start: 20180509
  7. CLEOCIN [Concomitant]
     Active Substance: CLINDAMYCIN PHOSPHATE
     Indication: DERMATITIS ACNEIFORM
     Dosage: 1 %, QD
     Route: 061
     Dates: start: 20180522
  8. KENALOG [Concomitant]
     Active Substance: TRIAMCINOLONE ACETONIDE
     Indication: DERMATITIS ACNEIFORM
     Dosage: 0.5 %, BID
     Route: 061
     Dates: start: 20180523
  9. VITAMIN D3 [Concomitant]
     Active Substance: CHOLECALCIFEROL
     Indication: SUPPLEMENTATION THERAPY
     Dosage: 5000 U, QD
     Route: 048
     Dates: start: 20180321, end: 20180629
  10. DESOWEN [Concomitant]
     Active Substance: DESONIDE
     Indication: DERMATITIS ACNEIFORM
     Dosage: 0.05 %, BID
     Route: 061
     Dates: start: 20180611
  11. MEDI4736 [Suspect]
     Active Substance: DURVALUMAB
     Indication: COLON CANCER METASTATIC
     Dosage: 1500 MG, Q28 DAYS
     Route: 042
     Dates: start: 20180518, end: 20180615
  12. PRADAXA [Concomitant]
     Active Substance: DABIGATRAN ETEXILATE MESYLATE
     Indication: THROMBOSIS PROPHYLAXIS
     Dosage: 150 MG, BID
     Route: 048
     Dates: start: 20180330
  13. TRIDERM [Concomitant]
     Active Substance: TRIAMCINOLONE ACETONIDE
     Indication: DERMATITIS ACNEIFORM
     Dosage: 0.1 %, BID
     Route: 061
     Dates: start: 20180611
  14. HUMULIN R [Concomitant]
     Active Substance: INSULIN HUMAN
     Indication: DIABETES MELLITUS
     Dosage: 2-6 U TID (BEFORE MEALS)
     Route: 058
     Dates: start: 20180803
  15. VIBRAMYCIN [Concomitant]
     Active Substance: DOXYCYCLINE
     Indication: DERMATITIS ACNEIFORM
     Dosage: 100 MG, BID
     Route: 048
     Dates: start: 20180522
  16. CLARITIN [Concomitant]
     Active Substance: LORATADINE
     Indication: DERMATITIS ACNEIFORM
     Dosage: 10 MG, QD
     Route: 048
     Dates: start: 20180611
  17. SENNA S [Concomitant]
     Active Substance: DOCUSATE SODIUM\SENNA LEAF
     Indication: CONSTIPATION
     Dosage: 2 DF, BID
     Route: 048
     Dates: start: 20180803

REACTIONS (1)
  - Autoimmune pancreatitis [Unknown]

NARRATIVE: CASE EVENT DATE: 20180801
